FAERS Safety Report 10701540 (Version 5)
Quarter: 2017Q2

REPORT INFORMATION
  Report Type: Spontaneous
  Country: US (occurrence: US)
  Receive Date: 20150109
  Receipt Date: 20170609
  Transmission Date: 20170829
  Serious: Yes (Other)
  Sender: FDA-Public Use
  Company Number: US-009507513-1110USA03481

PATIENT
  Sex: Male
  Weight: 79.82 kg

DRUGS (5)
  1. FINASTERIDE. [Suspect]
     Active Substance: FINASTERIDE
     Indication: ALOPECIA
     Dosage: UNK, UNKNOWN
     Route: 048
     Dates: start: 20110617
  2. PROSCAR [Suspect]
     Active Substance: FINASTERIDE
     Indication: ALOPECIA
     Dosage: 5 MG, TAKE 1/4 TABLET QD
     Route: 048
     Dates: start: 19980116, end: 20070510
  3. PROSCAR [Suspect]
     Active Substance: FINASTERIDE
     Indication: ANDROGENETIC ALOPECIA
  4. FINASTERIDE. [Suspect]
     Active Substance: FINASTERIDE
     Indication: ALOPECIA
     Dosage: 1 MG, QD
     Route: 048
  5. FINASTERIDE. [Suspect]
     Active Substance: FINASTERIDE
     Indication: ALOPECIA
     Dosage: 5 MG, 1/4 TABLET QD
     Route: 048
     Dates: start: 20070910, end: 20110617

REACTIONS (42)
  - Nail disorder [Unknown]
  - Sexual dysfunction [Recovered/Resolved]
  - Haematochezia [Unknown]
  - Deafness neurosensory [Not Recovered/Not Resolved]
  - Temperature intolerance [Recovered/Resolved]
  - Alopecia [Unknown]
  - Fatigue [Unknown]
  - Nausea [Recovering/Resolving]
  - Joint stiffness [Not Recovered/Not Resolved]
  - Epididymitis [Recovering/Resolving]
  - Head discomfort [Not Recovered/Not Resolved]
  - Dry mouth [Unknown]
  - Dizziness postural [Recovering/Resolving]
  - Ejaculation disorder [Recovered/Resolved]
  - Depression [Not Recovered/Not Resolved]
  - Arthralgia [Not Recovered/Not Resolved]
  - Anorectal discomfort [Unknown]
  - Hypoaesthesia [Not Recovered/Not Resolved]
  - Alopecia areata [Unknown]
  - Porphyria acute [Unknown]
  - Malaise [Unknown]
  - Muscle twitching [Unknown]
  - Bacterial infection [Unknown]
  - Rectal haemorrhage [Unknown]
  - Autonomic neuropathy [Unknown]
  - Amnesia [Not Recovered/Not Resolved]
  - Urinary tract infection [Unknown]
  - Nasal septum deviation [Unknown]
  - Seborrhoeic keratosis [Unknown]
  - Wrong technique in product usage process [Unknown]
  - Erectile dysfunction [Recovered/Resolved]
  - Ejaculation failure [Recovered/Resolved]
  - Libido decreased [Recovered/Resolved]
  - Cognitive disorder [Unknown]
  - Prostatitis [Unknown]
  - Nocturia [Unknown]
  - Prostatitis [Recovering/Resolving]
  - Anxiety [Not Recovered/Not Resolved]
  - Balance disorder [Unknown]
  - Stress [Unknown]
  - Drug ineffective [Unknown]
  - Dysuria [Unknown]

NARRATIVE: CASE EVENT DATE: 19980116
